FAERS Safety Report 10537722 (Version 1)
Quarter: 2014Q4

REPORT INFORMATION
  Report Type: Spontaneous
  Country: US (occurrence: US)
  Receive Date: 20141023
  Receipt Date: 20141023
  Transmission Date: 20150529
  Serious: No
  Sender: FDA-Public Use
  Company Number: US-ELI_LILLY_AND_COMPANY-US201410001848

PATIENT
  Age: 68 Year
  Sex: Female

DRUGS (1)
  1. HUMALOG [Suspect]
     Active Substance: INSULIN LISPRO
     Indication: PRODUCT USED FOR UNKNOWN INDICATION
     Dosage: UNK
     Route: 065
     Dates: start: 20141002

REACTIONS (3)
  - Blood glucose decreased [Unknown]
  - Incorrect product storage [Unknown]
  - Underdose [Unknown]

NARRATIVE: CASE EVENT DATE: 201410
